FAERS Safety Report 24606577 (Version 1)
Quarter: 2024Q4

REPORT INFORMATION
  Report Type: Spontaneous
  Country: US (occurrence: US)
  Receive Date: 20241112
  Receipt Date: 20241112
  Transmission Date: 20250115
  Serious: Yes (Disabling, Other)
  Sender: CHATTEM
  Company Number: US-OPELLA-2024OHG037457

PATIENT
  Sex: Male

DRUGS (1)
  1. TALC [Suspect]
     Active Substance: TALC
     Indication: Product used for unknown indication
     Route: 065

REACTIONS (9)
  - Mesothelioma [Unknown]
  - Disability [Unknown]
  - Deformity [Unknown]
  - Pain [Unknown]
  - Anxiety [Unknown]
  - Injury [Unknown]
  - Quality of life decreased [Unknown]
  - Exposure to chemical pollution [Unknown]
  - Occupational exposure to product [Unknown]
